FAERS Safety Report 4874452-7 (Version None)
Quarter: 2006Q1

REPORT INFORMATION
  Report Type: 
  Country: None (occurrence: None)
  Receive Date: 20060106
  Receipt Date: 20050406
  Transmission Date: 20060701
  Serious: Yes (Hospitalization, Disabling)
  Sender: FDA-Public Use
  Company Number: US-ROCHE-401307

PATIENT
  Age: 27 Year
  Sex: Female
  Weight: 120.2 kg

DRUGS (1)
  1. ACCUTANE [Suspect]
     Indication: ACNE
     Route: 048
     Dates: start: 19980515, end: 19981215

REACTIONS (33)
  - ANAEMIA [None]
  - ANTINUCLEAR ANTIBODY POSITIVE [None]
  - BACTERIAL CULTURE POSITIVE [None]
  - BACTERIAL INFECTION [None]
  - BLOOD CALCIUM INCREASED [None]
  - BLOOD GLUCOSE INCREASED [None]
  - CAESAREAN SECTION [None]
  - COLITIS [None]
  - COLITIS ULCERATIVE [None]
  - CROHN'S DISEASE [None]
  - DIVERTICULUM [None]
  - DRUG EXPOSURE DURING PREGNANCY [None]
  - DRUG HYPERSENSITIVITY [None]
  - ECZEMA [None]
  - GASTROINTESTINAL DISORDER [None]
  - GENITAL INFECTION FUNGAL [None]
  - HAEMORRHAGE [None]
  - HIATUS HERNIA [None]
  - INFLAMMATORY BOWEL DISEASE [None]
  - INTERNAL INJURY [None]
  - INTESTINAL HAEMORRHAGE [None]
  - LIPOMA [None]
  - MENSTRUATION IRREGULAR [None]
  - METRORRHAGIA [None]
  - PREGNANCY [None]
  - PSEUDOMONAS INFECTION [None]
  - RECTAL HAEMORRHAGE [None]
  - RECTAL POLYP [None]
  - RHEUMATOID ARTHRITIS [None]
  - SINUS HEADACHE [None]
  - SINUSITIS [None]
  - SJOGREN'S SYNDROME [None]
  - SMEAR CERVIX ABNORMAL [None]
